FAERS Safety Report 6191025-7 (Version None)
Quarter: 2009Q2

REPORT INFORMATION
  Report Type: 
  Country: None (occurrence: None)
  Receive Date: 20090513
  Receipt Date: 20090501
  Transmission Date: 20091009
  Serious: Yes (Other)
  Sender: FDA-Public Use
  Company Number: 234465K09USA

PATIENT
  Age: 63 Year
  Sex: Female

DRUGS (9)
  1. REBIF [Suspect]
     Indication: MULTIPLE SCLEROSIS
     Dosage: 44 MCG, 3 IN 1 WEEKS, SUBCUTANEOUS
     Route: 058
     Dates: start: 20090120
  2. ZETIA [Concomitant]
  3. ESTRADIOL (ESTRADIOL /00045401/) [Concomitant]
  4. CLONAZEPAM [Concomitant]
  5. RELPAX [Concomitant]
  6. DARVOCET [Concomitant]
  7. UNSPECIFIED EYE DROPS (TETRYZOLINE HYDROCHLORIDE) [Concomitant]
  8. IBUPROFEN [Concomitant]
  9. CIPRO [Concomitant]

REACTIONS (1)
  - HAEMANGIOMA [None]
